FAERS Safety Report 13646870 (Version 1)
Quarter: 2017Q2

REPORT INFORMATION
  Report Type: Spontaneous
  Country: US (occurrence: US)
  Receive Date: 20170613
  Receipt Date: 20170613
  Transmission Date: 20170830
  Serious: Yes (Other)
  Sender: FDA-Public Use
  Company Number: PHHY2017US082839

PATIENT

DRUGS (2)
  1. SONIDEGIB [Suspect]
     Active Substance: SONIDEGIB
     Indication: BASAL CELL CARCINOMA
     Dosage: 200 MG, QD
     Route: 065
  2. BKM120 [Suspect]
     Active Substance: BUPARLISIB HYDROCHLORIDE
     Indication: BASAL CELL CARCINOMA
     Dosage: 80 MG, QD
     Route: 065

REACTIONS (5)
  - Anxiety [Unknown]
  - Muscle spasms [Unknown]
  - Oesophagitis [Unknown]
  - Blood creatine phosphokinase increased [Unknown]
  - Abdominal pain [Unknown]
